FAERS Safety Report 14575082 (Version 2)
Quarter: 2018Q1

REPORT INFORMATION
  Report Type: Spontaneous
  Country: JP (occurrence: JP)
  Receive Date: 20180227
  Receipt Date: 20180327
  Transmission Date: 20180509
  Serious: Yes (Death)
  Sender: FDA-Public Use
  Company Number: JP-BEH-2018088201

PATIENT
  Age: 61 Year
  Sex: Female

DRUGS (10)
  1. METHYLPREDNISOLONE                 /00049602/ [Suspect]
     Active Substance: METHYLPREDNISOLONE
     Indication: INTERSTITIAL LUNG DISEASE
     Dosage: 80 MG, QD
     Route: 065
  2. POLYMYXIN B. [Suspect]
     Active Substance: POLYMYXIN B
     Indication: DERMATOMYOSITIS
  3. CYCLOPHOSPHAMIDE. [Suspect]
     Active Substance: CYCLOPHOSPHAMIDE
     Indication: DERMATOMYOSITIS
     Dosage: 500 MG, SINGLE
     Route: 042
  4. METHYLPREDNISOLONE                 /00049602/ [Suspect]
     Active Substance: METHYLPREDNISOLONE
     Indication: DERMATOMYOSITIS
     Dosage: 1000 MG, QD
     Route: 065
  5. CYCLOSPORINE. [Suspect]
     Active Substance: CYCLOSPORINE
     Indication: INTERSTITIAL LUNG DISEASE
     Dosage: 100 MG, QD
     Route: 065
  6. HUMAN IMMUNOGLOBULIN (NC) [Suspect]
     Active Substance: HUMAN IMMUNOGLOBULIN G
     Indication: INTERSTITIAL LUNG DISEASE
     Dosage: 400 MG, QD
     Route: 042
  7. HUMAN IMMUNOGLOBULIN (NC) [Suspect]
     Active Substance: HUMAN IMMUNOGLOBULIN G
     Indication: DERMATOMYOSITIS
  8. CYCLOPHOSPHAMIDE. [Suspect]
     Active Substance: CYCLOPHOSPHAMIDE
     Indication: INTERSTITIAL LUNG DISEASE
     Dosage: 500 MG, SINGLE
     Route: 042
  9. CYCLOSPORINE. [Suspect]
     Active Substance: CYCLOSPORINE
     Indication: DERMATOMYOSITIS
     Dosage: 150 MG, QD
     Route: 065
  10. POLYMYXIN B. [Suspect]
     Active Substance: POLYMYXIN B
     Indication: INTERSTITIAL LUNG DISEASE
     Route: 065

REACTIONS (1)
  - Drug ineffective for unapproved indication [Fatal]
